FAERS Safety Report 5801849-0 (Version None)
Quarter: 2008Q3

REPORT INFORMATION
  Report Type: 
  Country: None (occurrence: None)
  Receive Date: 20080702
  Receipt Date: 20080625
  Transmission Date: 20090109
  Serious: Yes (Hospitalization)
  Sender: FDA-Public Use
  Company Number: 08P-090-0455325-00

PATIENT
  Age: 3 Month
  Sex: Female
  Weight: 2.8 kg

DRUGS (10)
  1. SYNAGIS [Suspect]
     Indication: DRUG USE FOR UNKNOWN INDICATION
     Dosage: 70MG/0.7ML (70MG/0.7ML); 42MG/0.84ML (70MG/1.4ML); 70 MG/1.4ML (42MG/0.84ML)
     Dates: start: 20070125, end: 20070125
  2. SYNAGIS [Suspect]
     Indication: DRUG USE FOR UNKNOWN INDICATION
     Dosage: 70MG/0.7ML (70MG/0.7ML); 42MG/0.84ML (70MG/1.4ML); 70 MG/1.4ML (42MG/0.84ML)
     Dates: start: 20070227, end: 20070227
  3. SYNAGIS [Suspect]
     Indication: DRUG USE FOR UNKNOWN INDICATION
     Dosage: 70MG/0.7ML (70MG/0.7ML); 42MG/0.84ML (70MG/1.4ML); 70 MG/1.4ML (42MG/0.84ML)
     Dates: start: 20070329, end: 20070329
  4. HYDROCHLOROTHIAZIDE [Concomitant]
  5. SPIRONOLACTONE [Concomitant]
  6. URSODIOL [Concomitant]
  7. FERRUMATE SOLUTION [Concomitant]
  8. DOMPERIDONE [Concomitant]
  9. RANITIDINE HCL [Concomitant]
  10. AMINOPHYLLINE [Concomitant]

REACTIONS (1)
  - RESPIRATORY TRACT INFECTION [None]
